FAERS Safety Report 19750551 (Version 2)
Quarter: 2021Q3

REPORT INFORMATION
  Report Type: Spontaneous
  Country: US (occurrence: US)
  Receive Date: 20210826
  Receipt Date: 20210924
  Transmission Date: 20211014
  Serious: No
  Sender: FDA-Public Use
  Company Number: US-GLAXOSMITHKLINE-US2021174356

PATIENT
  Sex: Female

DRUGS (2)
  1. SUMATRIPTAN SUCCINATE. [Suspect]
     Active Substance: SUMATRIPTAN SUCCINATE
     Indication: HEADACHE
  2. SUMATRIPTAN SUCCINATE. [Suspect]
     Active Substance: SUMATRIPTAN SUCCINATE
     Indication: MIGRAINE
     Dosage: 4 MG, 2?UD SYRINGE ,KIT

REACTIONS (2)
  - Product dose omission issue [Unknown]
  - Vomiting [Unknown]
